FAERS Safety Report 10375309 (Version 1)
Quarter: 2014Q1

REPORT INFORMATION
  Report Type: Spontaneous
  Country: US (occurrence: None)
  Receive Date: 20140306
  Receipt Date: 20140306
  Transmission Date: 20141002
  Serious: Yes (Hospitalization, Other)
  Sender: FDA-Public Use
  Company Number: 163-21880-13010873

PATIENT
  Age: 56 Year
  Sex: Male

DRUGS (8)
  1. REVLIMID (LENALIDOMIDE) (10 MILLIGRAM, CAPSULES) [Suspect]
     Indication: PLASMA CELL MYELOMA
     Route: 048
     Dates: start: 20120327
  2. CULTURELLE (CULTURELLE) (UNKNOWN) [Concomitant]
  3. FAMICICLOVIR (FAMICICLOVIR) (UNKNOWN) [Concomitant]
  4. FLAGYL (METRONIDAZOLE) (UNKNOWN) (METRONIDAZOLE) [Concomitant]
  5. KLONOPIN (CLONAZEPAM) (UNKNOWN) [Concomitant]
  6. METOPROLOL TARTRATE (METOPROLOL TARTRATE) (UNKNOWN) [Concomitant]
  7. PAXIL CR (PAROXETINE HYDROCHLORIDE) (UNKNOWN) [Concomitant]
  8. VITAMIN B-12 (CYANOCOBALAMIN) (UNKNOWN) [Concomitant]

REACTIONS (2)
  - Febrile neutropenia [None]
  - Thrombocytopenia [None]
